FAERS Safety Report 24815344 (Version 3)
Quarter: 2025Q4

REPORT INFORMATION
  Report Type: Spontaneous
  Country: GB (occurrence: GB)
  Receive Date: 20250107
  Receipt Date: 20251028
  Transmission Date: 20260117
  Serious: Yes (Other)
  Sender: SANDOZ
  Company Number: None

PATIENT
  Age: 36 Year
  Sex: Male

DRUGS (117)
  1. AMLODIPINE [Suspect]
     Active Substance: AMLODIPINE BESYLATE
     Indication: Product used for unknown indication
     Dosage: UNK
     Route: 048
  2. AMLODIPINE [Suspect]
     Active Substance: AMLODIPINE BESYLATE
     Dosage: UNK, FREQ
     Route: 048
  3. AMLODIPINE [Suspect]
     Active Substance: AMLODIPINE BESYLATE
     Dosage: UNK, FREQ
     Route: 048
  4. AMLODIPINE [Suspect]
     Active Substance: AMLODIPINE BESYLATE
     Dosage: UNK, FREQ
     Route: 048
  5. AMLODIPINE [Suspect]
     Active Substance: AMLODIPINE BESYLATE
     Dosage: UNK, FREQ
     Route: 048
  6. AMLODIPINE [Suspect]
     Active Substance: AMLODIPINE BESYLATE
     Dosage: UNK, FREQ
     Route: 048
  7. AMLODIPINE [Suspect]
     Active Substance: AMLODIPINE BESYLATE
     Dosage: UNK, FREQ
     Route: 048
  8. AMLODIPINE [Suspect]
     Active Substance: AMLODIPINE BESYLATE
     Dosage: UNK, FREQ
     Route: 048
  9. AMLODIPINE [Suspect]
     Active Substance: AMLODIPINE BESYLATE
     Route: 048
  10. AMLODIPINE [Suspect]
     Active Substance: AMLODIPINE BESYLATE
     Route: 048
  11. AMLODIPINE BESYLATE [Suspect]
     Active Substance: AMLODIPINE BESYLATE
     Indication: Product used for unknown indication
     Dosage: DOSE DESCRIPTION : UNK
     Route: 048
  12. AMLODIPINE BESYLATE [Suspect]
     Active Substance: AMLODIPINE BESYLATE
     Dosage: UNK
     Route: 048
  13. ATORVASTATIN [Suspect]
     Active Substance: ATORVASTATIN
     Indication: Product used for unknown indication
     Dosage: DOSE DESCRIPTION : UNK
     Route: 048
  14. ATORVASTATIN [Suspect]
     Active Substance: ATORVASTATIN
     Dosage: UNK, FREQ
     Route: 048
  15. ATORVASTATIN [Suspect]
     Active Substance: ATORVASTATIN
     Dosage: UNK, FREQ
     Route: 048
  16. ATORVASTATIN [Suspect]
     Active Substance: ATORVASTATIN
     Indication: Product used for unknown indication
     Dosage: UNK
     Route: 048
  17. ATORVASTATIN [Suspect]
     Active Substance: ATORVASTATIN
     Dosage: UNK
     Route: 048
  18. ATORVASTATIN [Suspect]
     Active Substance: ATORVASTATIN
     Dosage: UNK
     Route: 048
  19. ATORVASTATIN [Suspect]
     Active Substance: ATORVASTATIN
     Dosage: UNK
     Route: 048
  20. ATORVASTATIN [Suspect]
     Active Substance: ATORVASTATIN
     Dosage: UNK
     Route: 048
  21. ATORVASTATIN [Suspect]
     Active Substance: ATORVASTATIN
     Dosage: UNK
     Route: 065
  22. ATORVASTATIN [Suspect]
     Active Substance: ATORVASTATIN
     Dosage: UNK
     Route: 065
  23. AMISULPRIDE [Suspect]
     Active Substance: AMISULPRIDE
     Indication: Product used for unknown indication
     Dosage: UNK
     Route: 048
  24. AMISULPRIDE [Suspect]
     Active Substance: AMISULPRIDE
     Dosage: UNK
     Route: 048
  25. AMISULPRIDE [Suspect]
     Active Substance: AMISULPRIDE
     Dosage: UNK
     Route: 048
  26. AMISULPRIDE [Suspect]
     Active Substance: AMISULPRIDE
     Dosage: UNK
     Route: 048
  27. AMISULPRIDE [Suspect]
     Active Substance: AMISULPRIDE
     Dosage: UNK
     Route: 065
  28. AMISULPRIDE [Suspect]
     Active Substance: AMISULPRIDE
     Dosage: UNK
     Route: 065
  29. QUETIAPINE FUMARATE [Suspect]
     Active Substance: QUETIAPINE FUMARATE
     Indication: Product used for unknown indication
     Dosage: UNK
     Route: 048
  30. QUETIAPINE FUMARATE [Suspect]
     Active Substance: QUETIAPINE FUMARATE
     Dosage: UNK
     Route: 048
  31. QUETIAPINE FUMARATE [Suspect]
     Active Substance: QUETIAPINE FUMARATE
     Dosage: UNK
     Route: 048
  32. QUETIAPINE FUMARATE [Suspect]
     Active Substance: QUETIAPINE FUMARATE
     Dosage: UNK (PROLONGED RELEASE)
     Route: 048
  33. QUETIAPINE FUMARATE [Suspect]
     Active Substance: QUETIAPINE FUMARATE
     Dosage: UNK (PROLONGED RELEASE)
     Route: 048
  34. QUETIAPINE FUMARATE [Suspect]
     Active Substance: QUETIAPINE FUMARATE
     Dosage: UNKNOWN, PROLONGED RELEASE
     Route: 048
  35. QUETIAPINE FUMARATE [Suspect]
     Active Substance: QUETIAPINE FUMARATE
     Dosage: UNKNOWN, PROLONGED RELEASE
     Route: 048
  36. CLOZAPINE [Suspect]
     Active Substance: CLOZAPINE
     Dosage: UNK
     Route: 065
     Dates: start: 20220317, end: 20220417
  37. CLOZAPINE [Suspect]
     Active Substance: CLOZAPINE
     Indication: Schizophrenia
     Dosage: UNK (START DATE: 21-NOV-2018) (STOP DATE: 17-MAR-2022)
     Route: 048
  38. CLOZAPINE [Suspect]
     Active Substance: CLOZAPINE
     Dosage: (START DATE21-NOV-2018 00:00) (STOP DATE: 17-APR-2022)
     Route: 048
  39. CLOZAPINE [Suspect]
     Active Substance: CLOZAPINE
     Dosage: (START DATE21-NOV-2018 00:00) (STOP DATE: 17-APR-2022)
     Route: 048
  40. CLOZAPINE [Suspect]
     Active Substance: CLOZAPINE
     Dosage: UNK
     Route: 048
  41. CLOZAPINE [Suspect]
     Active Substance: CLOZAPINE
     Dosage: UNK
     Route: 048
  42. CLOZAPINE [Suspect]
     Active Substance: CLOZAPINE
     Dosage: UNK (START DATE21-NOV-2018 00:00)
     Route: 048
     Dates: end: 20220317
  43. CLOZAPINE [Suspect]
     Active Substance: CLOZAPINE
     Dosage: START DATE: 17-MAR-2022
     Route: 065
  44. CLOZAPINE [Suspect]
     Active Substance: CLOZAPINE
     Dosage: START DATE: 17-MAR-2022
     Route: 065
  45. CLOZAPINE [Suspect]
     Active Substance: CLOZAPINE
     Dosage: START DATE: 17-MAR-2022
     Route: 065
  46. CLOZAPINE [Suspect]
     Active Substance: CLOZAPINE
     Dosage: START DATE: 17-MAR-2022
     Route: 065
  47. FINASTERIDE [Suspect]
     Active Substance: FINASTERIDE
     Indication: Product used for unknown indication
     Dosage: UNK
     Route: 065
  48. FINASTERIDE [Suspect]
     Active Substance: FINASTERIDE
     Dosage: UNK
     Route: 065
  49. FINASTERIDE\TAMSULOSIN [Suspect]
     Active Substance: FINASTERIDE\TAMSULOSIN
     Indication: Product used for unknown indication
     Dosage: UNK
     Route: 048
  50. FINASTERIDE\TAMSULOSIN [Suspect]
     Active Substance: FINASTERIDE\TAMSULOSIN
     Dosage: UNK
     Route: 048
  51. FINASTERIDE\TAMSULOSIN [Suspect]
     Active Substance: FINASTERIDE\TAMSULOSIN
     Dosage: UNK
     Route: 048
  52. FINASTERIDE\TAMSULOSIN [Suspect]
     Active Substance: FINASTERIDE\TAMSULOSIN
     Dosage: UNK, FREQ
     Route: 065
  53. FINASTERIDE\TAMSULOSIN [Suspect]
     Active Substance: FINASTERIDE\TAMSULOSIN
     Dosage: UNK, FREQ
     Route: 065
  54. GLIMEPIRIDE [Suspect]
     Active Substance: GLIMEPIRIDE
     Indication: Product used for unknown indication
     Dosage: DOSE DESCRIPTION : UNK
     Route: 048
  55. GLIMEPIRIDE [Suspect]
     Active Substance: GLIMEPIRIDE
     Dosage: UNK
     Route: 048
  56. GLIMEPIRIDE [Suspect]
     Active Substance: GLIMEPIRIDE
     Dosage: UNK
     Route: 048
  57. GLIMEPIRIDE [Suspect]
     Active Substance: GLIMEPIRIDE
     Dosage: UNK
     Route: 048
  58. GLIMEPIRIDE [Suspect]
     Active Substance: GLIMEPIRIDE
     Dosage: UNK, FREQ
     Route: 048
  59. GLIMEPIRIDE [Suspect]
     Active Substance: GLIMEPIRIDE
     Dosage: UNK, FREQ
     Route: 048
  60. GLIMEPIRIDE [Suspect]
     Active Substance: GLIMEPIRIDE
     Dosage: UNK, FREQ
     Route: 048
  61. GLIMEPIRIDE [Suspect]
     Active Substance: GLIMEPIRIDE
     Dosage: UNK, FREQ
     Route: 048
  62. GLIMEPIRIDE [Suspect]
     Active Substance: GLIMEPIRIDE
     Dosage: UNK, FREQ
     Route: 048
  63. GLIMEPIRIDE [Suspect]
     Active Substance: GLIMEPIRIDE
     Dosage: UNK, FREQ
     Route: 048
  64. INDAPAMIDE [Suspect]
     Active Substance: INDAPAMIDE
     Dosage: DOSE DESCRIPTION : UNK
     Route: 048
  65. INDAPAMIDE [Suspect]
     Active Substance: INDAPAMIDE
     Indication: Product used for unknown indication
     Dosage: UNK
     Route: 048
  66. INDAPAMIDE [Suspect]
     Active Substance: INDAPAMIDE
     Dosage: UNK
     Route: 048
  67. INDAPAMIDE [Suspect]
     Active Substance: INDAPAMIDE
     Dosage: UNK
     Route: 048
  68. INDAPAMIDE [Suspect]
     Active Substance: INDAPAMIDE
     Dosage: UNK, FREQ, (FILM-COATED TABLET)
     Route: 048
  69. METFORMIN [Suspect]
     Active Substance: METFORMIN HYDROCHLORIDE
     Indication: Product used for unknown indication
     Dosage: DOSE DESCRIPTION : UNK
     Route: 048
  70. METFORMIN [Suspect]
     Active Substance: METFORMIN HYDROCHLORIDE
     Dosage: UNK
     Route: 048
  71. METFORMIN [Suspect]
     Active Substance: METFORMIN HYDROCHLORIDE
     Dosage: UNK
     Route: 048
  72. METFORMIN [Suspect]
     Active Substance: METFORMIN HYDROCHLORIDE
     Dosage: UNK, FREQ
     Route: 048
  73. METFORMIN [Suspect]
     Active Substance: METFORMIN HYDROCHLORIDE
     Dosage: UNK, FREQ
     Route: 048
  74. METFORMIN [Suspect]
     Active Substance: METFORMIN HYDROCHLORIDE
     Route: 048
  75. METFORMIN HYDROCHLORIDE [Suspect]
     Active Substance: METFORMIN HYDROCHLORIDE
     Dosage: UNK
     Route: 048
  76. METFORMIN HYDROCHLORIDE [Suspect]
     Active Substance: METFORMIN HYDROCHLORIDE
     Indication: Product used for unknown indication
     Dosage: UNK UNK, UNKNOWN FREQ.
     Route: 048
  77. METFORMIN HYDROCHLORIDE [Suspect]
     Active Substance: METFORMIN HYDROCHLORIDE
     Dosage: UNK UNK, UNKNOWN FREQ.
     Route: 048
  78. METFORMIN HYDROCHLORIDE [Suspect]
     Active Substance: METFORMIN HYDROCHLORIDE
     Dosage: UNK UNK, UNKNOWN FREQ.
     Route: 048
  79. METFORMIN HYDROCHLORIDE [Suspect]
     Active Substance: METFORMIN HYDROCHLORIDE
     Dosage: UNK UNK, UNKNOWN FREQ.
     Route: 048
  80. METFORMIN HYDROCHLORIDE [Suspect]
     Active Substance: METFORMIN HYDROCHLORIDE
     Dosage: UNK UNK, UNKNOWN FREQ.
     Route: 048
  81. PIOGLITAZONE [Suspect]
     Active Substance: PIOGLITAZONE
     Indication: Product used for unknown indication
     Dosage: DOSE DESCRIPTION : UNK
     Route: 048
  82. PIOGLITAZONE [Suspect]
     Active Substance: PIOGLITAZONE
     Dosage: UNK
     Route: 048
  83. PIOGLITAZONE [Suspect]
     Active Substance: PIOGLITAZONE
     Dosage: UNK, FREQ
     Route: 048
  84. QUETIAPINE [Suspect]
     Active Substance: QUETIAPINE
     Indication: Product used for unknown indication
     Dosage: DOSE DESCRIPTION : UNK
     Route: 048
  85. QUETIAPINE [Suspect]
     Active Substance: QUETIAPINE
     Indication: Product used for unknown indication
     Dosage: UNK
     Route: 048
  86. QUETIAPINE [Suspect]
     Active Substance: QUETIAPINE
     Dosage: UNK
     Route: 048
  87. QUETIAPINE [Suspect]
     Active Substance: QUETIAPINE
     Dosage: UNK
     Route: 048
  88. QUETIAPINE [Suspect]
     Active Substance: QUETIAPINE
     Dosage: UNK
     Route: 048
  89. QUETIAPINE [Suspect]
     Active Substance: QUETIAPINE
     Dosage: UNK
     Route: 048
  90. QUETIAPINE [Suspect]
     Active Substance: QUETIAPINE
     Dosage: UNK
     Route: 065
  91. QUETIAPINE [Suspect]
     Active Substance: QUETIAPINE
     Dosage: UNK
     Route: 065
  92. QUETIAPINE [Suspect]
     Active Substance: QUETIAPINE
     Dosage: UNK
     Route: 065
  93. QUETIAPINE [Suspect]
     Active Substance: QUETIAPINE
     Dosage: UNK
     Route: 065
  94. QUETIAPINE [Suspect]
     Active Substance: QUETIAPINE
     Dosage: UNK, FREQ
     Route: 048
  95. QUETIAPINE [Suspect]
     Active Substance: QUETIAPINE
     Dosage: UNK, FREQ
     Route: 065
  96. QUETIAPINE FUMARATE [Suspect]
     Active Substance: QUETIAPINE FUMARATE
     Indication: Product used for unknown indication
     Dosage: UNK
     Route: 048
  97. QUETIAPINE FUMARATE [Suspect]
     Active Substance: QUETIAPINE FUMARATE
     Dosage: UNK
     Route: 048
  98. QUETIAPINE FUMARATE [Suspect]
     Active Substance: QUETIAPINE FUMARATE
     Dosage: UNK
     Route: 048
  99. QUETIAPINE FUMARATE [Suspect]
     Active Substance: QUETIAPINE FUMARATE
     Dosage: UNK
     Route: 048
  100. QUETIAPINE FUMARATE [Suspect]
     Active Substance: QUETIAPINE FUMARATE
     Dosage: UNK
     Route: 048
  101. QUETIAPINE FUMARATE [Suspect]
     Active Substance: QUETIAPINE FUMARATE
     Dosage: UNK
     Route: 065
  102. QUETIAPINE FUMARATE [Suspect]
     Active Substance: QUETIAPINE FUMARATE
     Dosage: UNK, (PROLONGED RELEASE)
     Route: 048
  103. QUETIAPINE FUMARATE [Suspect]
     Active Substance: QUETIAPINE FUMARATE
     Dosage: UNK, FREQ
     Route: 048
  104. QUETIAPINE FUMARATE [Suspect]
     Active Substance: QUETIAPINE FUMARATE
     Dosage: UNK, FREQ
     Route: 048
  105. RAMIPRIL [Suspect]
     Active Substance: RAMIPRIL
     Indication: Product used for unknown indication
     Dosage: DOSE DESCRIPTION : UNK
     Route: 048
  106. RAMIPRIL [Suspect]
     Active Substance: RAMIPRIL
     Dosage: UNK, FREQ
     Route: 048
  107. RAMIPRIL [Suspect]
     Active Substance: RAMIPRIL
     Dosage: UNK, FREQ
     Route: 048
  108. RAMIPRIL [Suspect]
     Active Substance: RAMIPRIL
     Route: 048
  109. TAMSULOSIN [Suspect]
     Active Substance: TAMSULOSIN
     Indication: Product used for unknown indication
     Dosage: DOSE DESCRIPTION : UNK
     Route: 065
  110. TAMSULOSIN [Suspect]
     Active Substance: TAMSULOSIN
     Dosage: UNK, FREQ
     Route: 048
  111. TAMSULOSIN [Suspect]
     Active Substance: TAMSULOSIN
     Dosage: UNK, FREQ
     Route: 048
  112. ATORVASTATIN [Concomitant]
     Active Substance: ATORVASTATIN
     Indication: Product used for unknown indication
     Dosage: UNK
     Route: 048
  113. ATORVASTATIN [Concomitant]
     Active Substance: ATORVASTATIN
     Dosage: UNK
     Route: 048
  114. ATORVASTATIN [Concomitant]
     Active Substance: ATORVASTATIN
     Dosage: UNK UNK, UNKNOWN FREQ.
     Route: 048
  115. TAMSULOSIN [Concomitant]
     Active Substance: TAMSULOSIN
     Dosage: UNK
     Route: 065
  116. TAMSULOSIN [Concomitant]
     Active Substance: TAMSULOSIN
     Indication: Product used for unknown indication
     Dosage: UNK
     Route: 065
  117. TAMSULOSIN [Concomitant]
     Active Substance: TAMSULOSIN
     Dosage: UNK
     Route: 065

REACTIONS (7)
  - Hallucination, visual [Unknown]
  - Neutropenia [Recovered/Resolved]
  - Type 2 diabetes mellitus [Unknown]
  - Hyperthyroidism [Unknown]
  - Influenza [Unknown]
  - White blood cell count decreased [Recovered/Resolved]
  - White blood cell count increased [Recovered/Resolved]

NARRATIVE: CASE EVENT DATE: 20150101
